FAERS Safety Report 7597161-2 (Version None)
Quarter: 2011Q3

REPORT INFORMATION
  Report Type: 
  Country: None (occurrence: None)
  Receive Date: 20110708
  Receipt Date: 20100622
  Transmission Date: 20111222
  Serious: No
  Sender: FDA-Public Use
  Company Number: US-GLAXOSMITHKLINE-A0866569A

PATIENT
  Age: 55 Year
  Sex: Male

DRUGS (7)
  1. FLOVENT [Suspect]
     Dosage: 1PUFF TWICE PER DAY
     Route: 055
     Dates: start: 20090101
  2. ALBUTEROL SULFATE AUTOHALER [Concomitant]
  3. FLOVENT [Suspect]
     Indication: CHRONIC OBSTRUCTIVE PULMONARY DISEASE
     Dosage: 1PUFF TWICE PER DAY
     Route: 055
     Dates: start: 20100101, end: 20100101
  4. COMBIVENT [Concomitant]
  5. OXYGEN [Concomitant]
  6. ACCUPRIL [Concomitant]
  7. VICODIN ES [Concomitant]

REACTIONS (3)
  - BRONCHOSPASM [None]
  - ADVERSE REACTION [None]
  - DRUG INTERACTION [None]
